FAERS Safety Report 5474496-0 (Version None)
Quarter: 2007Q4

REPORT INFORMATION
  Report Type: 
  Country: None (occurrence: None)
  Receive Date: 20071002
  Receipt Date: 20070911
  Transmission Date: 20080405
  Serious: Yes (Hospitalization, Other)
  Sender: FDA-Public Use
  Company Number: US-BAYER-200615223BWH

PATIENT
  Age: 55 Year
  Sex: Female

DRUGS (9)
  1. NEXAVAR [Suspect]
     Indication: METASTATIC MALIGNANT MELANOMA
     Dosage: TOTAL DAILY DOSE: 400 MG  UNIT DOSE: 200 MG
     Route: 048
     Dates: start: 20060901, end: 20061107
  2. NEXAVAR [Suspect]
     Dosage: TOTAL DAILY DOSE: 800 MG  UNIT DOSE: 200 MG
     Route: 048
     Dates: start: 20060814, end: 20060901
  3. PYRIDOXINE (VITAMIN B6) [Suspect]
     Indication: DRUG USE FOR UNKNOWN INDICATION
  4. VANCOMYCIN [Suspect]
     Indication: STAPHYLOCOCCAL INFECTION
  5. ABRAXANE [Suspect]
     Indication: MALIGNANT MELANOMA
  6. CARBOPLATIN [Suspect]
     Indication: MALIGNANT MELANOMA
  7. COUMADIN [Concomitant]
     Route: 048
  8. ATENOLOL [Concomitant]
  9. HYDROXIZINE [Concomitant]

REACTIONS (17)
  - ANAEMIA [None]
  - BLISTER [None]
  - CHILLS [None]
  - CONVULSION [None]
  - COUGH [None]
  - DIARRHOEA [None]
  - EYE INFECTION [None]
  - HYPOTENSION [None]
  - JUGULAR VEIN THROMBOSIS [None]
  - NAUSEA [None]
  - PYREXIA [None]
  - RASH GENERALISED [None]
  - STAPHYLOCOCCAL INFECTION [None]
  - STAPHYLOCOCCAL SEPSIS [None]
  - STEVENS-JOHNSON SYNDROME [None]
  - STOMATITIS [None]
  - VOMITING [None]
